FAERS Safety Report 8952760 (Version 2)
Quarter: 2015Q2

REPORT INFORMATION
  Report Type: Report from Study
  Country: US (occurrence: US)
  Receive Date: 20121205
  Receipt Date: 20150616
  Transmission Date: 20150821
  Serious: Yes (Death, Hospitalization, Other)
  Sender: FDA-Public Use
  Company Number: US-ASTELLAS-2012US011736

PATIENT
  Age: 67 Year
  Sex: Male

DRUGS (3)
  1. BENZONATATE. [Concomitant]
     Active Substance: BENZONATATE
     Indication: PRODUCT USED FOR UNKNOWN INDICATION
     Dosage: UNK UNK, UNKNOWN FREQ.
     Route: 065
  2. ERLOTINIB [Suspect]
     Active Substance: ERLOTINIB
     Indication: LUNG CARCINOMA CELL TYPE UNSPECIFIED STAGE 0
  3. ERLOTINIB [Suspect]
     Active Substance: ERLOTINIB
     Indication: MALIGNANT RESPIRATORY TRACT NEOPLASM
     Route: 048
     Dates: start: 200710, end: 20071101

REACTIONS (9)
  - Asthenia [Unknown]
  - Acne [Unknown]
  - Decreased appetite [Unknown]
  - Non-small cell lung cancer metastatic [Fatal]
  - Pleural effusion [Unknown]
  - Dyspnoea [Unknown]
  - Cognitive disorder [Unknown]
  - Orthopnoea [Unknown]
  - Cough [Unknown]

NARRATIVE: CASE EVENT DATE: 200710
